FAERS Safety Report 6792743-X (Version None)
Quarter: 2010Q2

REPORT INFORMATION
  Report Type: 
  Country: None (occurrence: None)
  Receive Date: 20100624
  Receipt Date: 20080917
  Transmission Date: 20101027
  Serious: Yes (Other)
  Sender: FDA-Public Use
  Company Number: US-PFIZER INC-2008078844

PATIENT
  Sex: Female
  Weight: 61.2 kg

DRUGS (5)
  1. GEODON [Suspect]
     Indication: BIPOLAR DISORDER
     Dates: start: 20070101
  2. GEODON [Suspect]
     Indication: AGITATION
  3. ZOLOFT [Suspect]
     Indication: BIPOLAR DISORDER
     Dates: start: 20070101
  4. ZOLOFT [Suspect]
     Indication: AGITATION
  5. SYNTHROID [Concomitant]
     Indication: THYROID DISORDER

REACTIONS (14)
  - CHROMATOPSIA [None]
  - DIARRHOEA [None]
  - DIZZINESS [None]
  - HEADACHE [None]
  - LETHARGY [None]
  - MOVEMENT DISORDER [None]
  - NAUSEA [None]
  - RASH [None]
  - RESPIRATORY TRACT INFECTION [None]
  - SOMNOLENCE [None]
  - THYROID FUNCTION TEST ABNORMAL [None]
  - TREMOR [None]
  - VISION BLURRED [None]
  - VISUAL IMPAIRMENT [None]
